FAERS Safety Report 17313998 (Version 2)
Quarter: 2020Q1

REPORT INFORMATION
  Report Type: Spontaneous
  Country: GR (occurrence: GR)
  Receive Date: 20200124
  Receipt Date: 20200127
  Transmission Date: 20200409
  Serious: Yes (Other)
  Sender: FDA-Public Use
  Company Number: GR-ROCHE-2528785

PATIENT
  Sex: Male

DRUGS (3)
  1. RITUXIMAB. [Suspect]
     Active Substance: RITUXIMAB
     Dosage: 2 CYCLES
     Route: 065
     Dates: start: 201909, end: 201911
  2. RITUXIMAB. [Suspect]
     Active Substance: RITUXIMAB
     Indication: DIFFUSE LARGE B-CELL LYMPHOMA
     Dosage: EVERY 2 MONTHS
     Route: 065
     Dates: end: 201908
  3. DHAP [Suspect]
     Active Substance: CISPLATIN\CYTARABINE\DEXAMETHASONE
     Indication: DIFFUSE LARGE B-CELL LYMPHOMA
     Dosage: 2 CYCLES
     Route: 065
     Dates: start: 201909, end: 201911

REACTIONS (3)
  - Diffuse large B-cell lymphoma recurrent [Unknown]
  - Intentional product misuse [Unknown]
  - Off label use [Unknown]
